FAERS Safety Report 5099996-7 (Version None)
Quarter: 2006Q3

REPORT INFORMATION
  Report Type: 
  Country: None (occurrence: None)
  Receive Date: 20060906
  Receipt Date: 20060906
  Transmission Date: 20061208
  Serious: Yes (Hospitalization)
  Sender: FDA-Public Use
  Company Number: None

PATIENT
  Sex: Female
  Weight: 194 kg

DRUGS (4)
  1. CARBOPLATIN [Suspect]
     Dosage: AUC 6 IV EVERY 3 WEEKS
     Route: 042
  2. HYDROCHLOROTHIAZIDE [Concomitant]
     Dosage: 175 MG/M2
  3. LISINOPRIL [Concomitant]
  4. TAXOL [Suspect]
     Dosage: 175MG/M2

REACTIONS (1)
  - NEUTROPHIL COUNT ABNORMAL [None]
